FAERS Safety Report 8199913 (Version 3)
Quarter: 2013Q1

REPORT INFORMATION
  Report Type: Spontaneous
  Country: US (occurrence: US)
  Receive Date: 20111026
  Receipt Date: 20130214
  Transmission Date: 20140127
  Serious: Yes (Other)
  Sender: FDA-Public Use
  Company Number: US-US-EMD SERONO, INC.-7089646

PATIENT
  Age: 43 None
  Sex: Female
  Weight: 62 kg

DRUGS (3)
  1. REBIF [Suspect]
     Indication: MULTIPLE SCLEROSIS
     Dates: start: 20110916, end: 20111012
  2. REBIF [Suspect]
     Route: 058
     Dates: start: 20111012
  3. CELEXA [Concomitant]
     Indication: DEPRESSION
     Route: 048

REACTIONS (9)
  - Suicidal behaviour [Recovered/Resolved]
  - Depression [Recovering/Resolving]
  - Weight decreased [Unknown]
  - Cognitive disorder [Not Recovered/Not Resolved]
  - Constipation [Not Recovered/Not Resolved]
  - Multiple sclerosis relapse [Unknown]
  - Fatigue [Unknown]
  - Pain [Recovering/Resolving]
  - Inappropriate schedule of drug administration [Unknown]
